FAERS Safety Report 4962958-1 (Version None)
Quarter: 2006Q1

REPORT INFORMATION
  Report Type: 
  Country: None (occurrence: None)
  Receive Date: 20060331
  Receipt Date: 20060329
  Transmission Date: 20060701
  Serious: Yes (Life-Threatening, Other)
  Sender: FDA-Public Use
  Company Number: HQWYE573429MAR06

PATIENT
  Age: 68 Year
  Sex: Male

DRUGS (3)
  1. AMIODARONE HYDROCHLORIDE [Suspect]
     Indication: ATRIAL FIBRILLATION
     Dosage: 150 MG 1X PER 1 DAY; INTRAVENOUS
     Route: 042
     Dates: start: 20060223, end: 20060223
  2. MONOPRIL [Concomitant]
  3. ACETYLSALICYLIC ACID SRT [Concomitant]

REACTIONS (4)
  - DYSPNOEA [None]
  - HYPERAEMIA [None]
  - HYPOTENSION [None]
  - SACRAL PAIN [None]
